FAERS Safety Report 5796268-X (Version None)
Quarter: 2008Q2

REPORT INFORMATION
  Report Type: 
  Country: None (occurrence: None)
  Receive Date: 20080618
  Receipt Date: 20070824
  Transmission Date: 20081010
  Serious: Yes (Other)
  Sender: FDA-Public Use
  Company Number: 200715477US

PATIENT
  Age: 42 Year
  Sex: Female
  Weight: 61 kg

DRUGS (5)
  1. LANTUS [Suspect]
     Indication: TYPE 1 DIABETES MELLITUS
     Dosage: 42 U QD
     Dates: end: 20070728
  2. LANTUS [Suspect]
     Indication: TYPE 1 DIABETES MELLITUS
     Dosage: 32 U QD
     Dates: start: 20070729
  3. HUMALOG [Concomitant]
  4. FLUTICASONE PROPIONATE, SALMETEROL XINAFOATE (ADVAIR) [Concomitant]
  5. SALBUTAMOL [Concomitant]

REACTIONS (6)
  - BLOOD GLUCOSE INCREASED [None]
  - HYPERHIDROSIS [None]
  - HYPOGLYCAEMIA [None]
  - LOSS OF CONSCIOUSNESS [None]
  - MALAISE [None]
  - MENTAL IMPAIRMENT [None]
